FAERS Safety Report 11892190 (Version 2)
Quarter: 2016Q1

REPORT INFORMATION
  Report Type: Spontaneous
  Country: PL (occurrence: PL)
  Receive Date: 20160106
  Receipt Date: 20160111
  Transmission Date: 20160526
  Serious: Yes (Death, Other)
  Sender: FDA-Public Use
  Company Number: PL-KADMON PHARMACEUTICALS, LLC-KAD201512-004718

PATIENT
  Age: 65 Year
  Sex: Female
  Weight: 52 kg

DRUGS (7)
  1. EXVIERA [Suspect]
     Active Substance: DASABUVIR
     Indication: HEPATITIS C
     Dosage: TABLET
     Route: 048
     Dates: start: 20151116, end: 20151126
  2. RIBAVIRIN. [Suspect]
     Active Substance: RIBAVIRIN
     Indication: HEPATITIS C
     Dosage: TABLET
     Route: 048
     Dates: start: 20151116, end: 20151126
  3. RANIGAST/RANITIDINE [Concomitant]
     Indication: PROPHYLAXIS
     Dosage: TABLET
     Route: 048
     Dates: start: 20151116, end: 20151126
  4. VIEKIRAX [Suspect]
     Active Substance: OMBITASVIR\PARITAPREVIR\RITONAVIR
     Indication: HEPATITIS C
     Dosage: TABLET
     Route: 048
     Dates: start: 20151116, end: 20151126
  5. DEXAMETHASONE. [Concomitant]
     Active Substance: DEXAMETHASONE
     Indication: SPINAL PAIN
     Dosage: TABLET
     Route: 048
     Dates: start: 201509, end: 20151126
  6. RANIGAST/RANITIDINE [Concomitant]
     Indication: GASTRIC DISORDER
  7. KETONAL/KETOPROFEN [Concomitant]
     Indication: SPINAL PAIN
     Dosage: TABLET
     Route: 048
     Dates: start: 201509, end: 20151126

REACTIONS (2)
  - Asthenia [Unknown]
  - Gastrointestinal haemorrhage [Fatal]

NARRATIVE: CASE EVENT DATE: 20151126
